FAERS Safety Report 12879506 (Version 1)
Quarter: 2016Q4

REPORT INFORMATION
  Report Type: Other
  Country: PL (occurrence: PL)
  Receive Date: 20161025
  Receipt Date: 20161025
  Transmission Date: 20170207
  Serious: Yes (Other)
  Sender: FDA-Public Use
  Company Number: PL-LUPIN PHARMACEUTICALS INC.-2015-03945

PATIENT
  Age: 5 Month
  Sex: Male

DRUGS (1)
  1. CEFTRIAXONE. [Suspect]
     Active Substance: CEFTRIAXONE
     Indication: PYELONEPHRITIS ACUTE
     Dosage: 100 MG/KG
     Route: 042

REACTIONS (2)
  - Gallbladder enlargement [Recovered/Resolved]
  - Cholelithiasis [Recovered/Resolved]
